FAERS Safety Report 11538204 (Version 7)
Quarter: 2016Q3

REPORT INFORMATION
  Report Type: Spontaneous
  Country: US (occurrence: US)
  Receive Date: 20150922
  Receipt Date: 20160811
  Transmission Date: 20161109
  Serious: Yes (Hospitalization)
  Sender: FDA-Public Use
  Company Number: US-ACTELION-A-NJ2015-123502

PATIENT
  Age: 34 Year
  Sex: Female

DRUGS (3)
  1. VELETRI [Suspect]
     Active Substance: EPOPROSTENOL
     Indication: PULMONARY HYPERTENSION
     Dosage: 20 NG/KG, PER MIN
     Route: 042
     Dates: start: 20150407
  2. WARFARIN [Concomitant]
     Active Substance: WARFARIN
  3. SILDENAFIL. [Concomitant]
     Active Substance: SILDENAFIL

REACTIONS (11)
  - Pregnancy [Unknown]
  - Generalised erythema [Unknown]
  - Catheter site pruritus [Unknown]
  - Diarrhoea [Unknown]
  - Central venous catheterisation [Unknown]
  - Catheter site erythema [Unknown]
  - Catheter site infection [Unknown]
  - Catheter site pain [Unknown]
  - Catheter site discharge [Unknown]
  - Device related infection [Unknown]
  - Pain in jaw [Unknown]
